FAERS Safety Report 5079281-X (Version None)
Quarter: 2006Q3

REPORT INFORMATION
  Report Type: 
  Country: None (occurrence: None)
  Receive Date: 20060809
  Receipt Date: 20060727
  Transmission Date: 20061208
  Serious: Yes (Death, Hospitalization, Other)
  Sender: FDA-Public Use
  Company Number: 2006094070

PATIENT
  Age: 85 Year
  Sex: Female
  Weight: 55.3388 kg

DRUGS (5)
  1. BEXTRA [Suspect]
     Indication: ARTHRITIS
     Dosage: 10 MG (10 MG, 1 IN 1 D),
     Route: 047
     Dates: start: 20031104, end: 20031202
  2. ASPIRIN [Concomitant]
  3. NITROGLYCERIN [Concomitant]
  4. WARFARIN SODIUM [Concomitant]
  5. NORVASC [Concomitant]

REACTIONS (2)
  - ATRIAL FIBRILLATION [None]
  - MYOCARDIAL INFARCTION [None]
